FAERS Safety Report 7650688-7 (Version None)
Quarter: 2011Q3

REPORT INFORMATION
  Report Type: 
  Country: None (occurrence: None)
  Receive Date: 20110802
  Receipt Date: 20110728
  Transmission Date: 20111222
  Serious: Yes (Hospitalization, Other)
  Sender: FDA-Public Use
  Company Number: CA-ABBOTT-11P-028-0841345-00

PATIENT
  Sex: Male

DRUGS (1)
  1. HUMIRA [Suspect]
     Indication: CROHN'S DISEASE
     Route: 058
     Dates: start: 20101008, end: 20101230

REACTIONS (17)
  - ABDOMINAL PAIN [None]
  - HYPOTENSION [None]
  - FATIGUE [None]
  - NASOPHARYNGITIS [None]
  - NAUSEA [None]
  - IMPAIRED HEALING [None]
  - GASTROINTESTINAL SOUNDS ABNORMAL [None]
  - ABDOMINAL ABSCESS [None]
  - ANAEMIA [None]
  - GASTROINTESTINAL DISORDER [None]
  - GASTROINTESTINAL FISTULA [None]
  - VOMITING [None]
  - ECZEMA [None]
  - HYPOPHAGIA [None]
  - OROPHARYNGEAL PAIN [None]
  - ABSCESS [None]
  - DIARRHOEA [None]
